FAERS Safety Report 14790383 (Version 2)
Quarter: 2018Q2

REPORT INFORMATION
  Report Type: Spontaneous
  Country: GB (occurrence: GB)
  Receive Date: 20180423
  Receipt Date: 20180514
  Transmission Date: 20180711
  Serious: Yes (Hospitalization, Disabling, Other)
  Sender: FDA-Public Use
  Company Number: GB-BAYER-2018-073653

PATIENT
  Age: 64 Year
  Sex: Male
  Weight: 98.45 kg

DRUGS (2)
  1. XOFIGO [Suspect]
     Active Substance: RADIUM RA-223 DICHLORIDE
     Indication: PROSTATE CANCER
     Dosage: 5.41 MBQ, OM
     Route: 042
     Dates: start: 20171127, end: 20180410
  2. XOFIGO [Suspect]
     Active Substance: RADIUM RA-223 DICHLORIDE
     Indication: METASTASES TO BONE

REACTIONS (10)
  - Malaise [Recovered/Resolved]
  - Blood pressure increased [Recovered/Resolved]
  - Pallor [Recovered/Resolved]
  - Unresponsive to stimuli [Recovered/Resolved]
  - Hypotonia [Recovered/Resolved]
  - Fatigue [Recovered/Resolved]
  - Dizziness [Recovered/Resolved]
  - Syncope [None]
  - Vomiting [Recovered/Resolved]
  - Nausea [Recovered/Resolved]

NARRATIVE: CASE EVENT DATE: 20180410
